FAERS Safety Report 8461513-9 (Version None)
Quarter: 2012Q2

REPORT INFORMATION
  Report Type: 
  Country: None (occurrence: None)
  Receive Date: 20120625
  Receipt Date: 20120614
  Transmission Date: 20120825
  Serious: Yes (Hospitalization)
  Sender: FDA-Public Use
  Company Number: FR-MPIJNJ-2012-04299

PATIENT

DRUGS (8)
  1. EFFERALGAN                         /00020001/ [Concomitant]
     Dosage: UNK
     Route: 048
     Dates: start: 20120501
  2. INNOHEP [Concomitant]
     Dosage: UNK
     Route: 058
     Dates: start: 20120606
  3. AMOXICILLIN [Concomitant]
     Dosage: UNK
     Route: 048
     Dates: start: 20120604
  4. DEXAMETHASONE [Suspect]
     Indication: MULTIPLE MYELOMA
     Dosage: 20 MG, UNK
     Route: 065
     Dates: start: 20120604, end: 20120608
  5. BACTRIM [Concomitant]
     Dosage: UNK
     Route: 048
     Dates: start: 20120604
  6. REVLIMID [Suspect]
     Indication: MULTIPLE MYELOMA
     Dosage: 25 MG, UNK
     Route: 065
     Dates: start: 20120604, end: 20120601
  7. VELCADE [Suspect]
     Indication: MULTIPLE MYELOMA
     Dosage: 2.5 MG, UNK
     Route: 065
     Dates: start: 20120604, end: 20120607
  8. ZELITREX                           /01269701/ [Concomitant]
     Dosage: UNK
     Route: 048
     Dates: start: 20120604

REACTIONS (3)
  - HYPERTHERMIA [None]
  - LUNG DISORDER [None]
  - HYPOXIA [None]
